FAERS Safety Report 10181575 (Version 1)
Quarter: 2014Q2

REPORT INFORMATION
  Report Type: Report from Study
  Country: KR (occurrence: KR)
  Receive Date: 20140519
  Receipt Date: 20140519
  Transmission Date: 20141212
  Serious: Yes (Death)
  Sender: FDA-Public Use
  Company Number: KR-GLAXOSMITHKLINE-B0992437A

PATIENT
  Age: 55 Year
  Sex: Female
  Weight: 56.8 kg

DRUGS (6)
  1. TYKERB [Suspect]
     Indication: BREAST CANCER
     Dosage: 1250MG PER DAY
     Route: 048
     Dates: start: 20101005, end: 20101019
  2. XELODA [Concomitant]
     Indication: BREAST CANCER
     Dosage: 1400MG TWICE PER DAY
     Route: 048
     Dates: start: 20101005, end: 20101019
  3. ALMAGEL [Concomitant]
     Indication: DYSPEPSIA
     Dosage: 15UNIT THREE TIMES PER DAY
     Route: 048
     Dates: start: 20101003, end: 20101018
  4. APETROL (CYPROHEPTADINE HYDROCHLORIDE) [Concomitant]
     Indication: DECREASED APPETITE
     Dosage: 10UNIT TWICE PER DAY
     Route: 048
     Dates: start: 20100911, end: 20101019
  5. GASTER [Concomitant]
     Indication: DYSPEPSIA
     Dosage: 20UNIT TWICE PER DAY
     Route: 048
     Dates: start: 20100705, end: 20101018
  6. OXYCODONE IMMEDIATE RELEASE [Concomitant]
     Indication: PAIN
     Dosage: 5UNIT AS REQUIRED
     Route: 048
     Dates: start: 20100718, end: 20101021

REACTIONS (1)
  - Breast cancer [Fatal]
